FAERS Safety Report 9492806 (Version 3)
Quarter: 2013Q3

REPORT INFORMATION
  Report Type: Report from Study
  Country: US (occurrence: US)
  Receive Date: 20130830
  Receipt Date: 20130926
  Transmission Date: 20140515
  Serious: Yes (Hospitalization)
  Sender: FDA-Public Use
  Company Number: US-ROCHE-1263872

PATIENT
  Age: 57 Year
  Sex: Female

DRUGS (15)
  1. RITUXAN [Suspect]
     Indication: SYSTEMIC LUPUS ERYTHEMATOSUS
     Route: 042
     Dates: start: 201111
  2. RITUXAN [Suspect]
     Indication: OFF LABEL USE
  3. NAPROSYN [Suspect]
     Indication: PRODUCT USED FOR UNKNOWN INDICATION
     Route: 065
  4. FOSAMAX [Concomitant]
  5. ASPIRIN [Concomitant]
     Route: 065
  6. PEPCID [Concomitant]
  7. RESTASIS [Concomitant]
  8. PLAQUENIL [Concomitant]
  9. NITROSTAT [Concomitant]
  10. VITAMIN D3 [Concomitant]
  11. IMDUR [Concomitant]
  12. ACETAMINOPHEN [Concomitant]
  13. ZESTRIL [Concomitant]
  14. LOPRESSOR [Concomitant]
  15. PRAVACHOL [Concomitant]

REACTIONS (11)
  - Chest pain [Recovered/Resolved]
  - Acute coronary syndrome [Recovered/Resolved]
  - Arthralgia [Unknown]
  - Dry eye [Unknown]
  - Laboratory test abnormal [Unknown]
  - Musculoskeletal stiffness [Unknown]
  - Diarrhoea [Recovered/Resolved]
  - Abdominal pain [Recovered/Resolved]
  - Pyrexia [Recovered/Resolved]
  - Back pain [Unknown]
  - Neck pain [Unknown]
